FAERS Safety Report 8418385-8 (Version None)
Quarter: 2012Q2

REPORT INFORMATION
  Report Type: 
  Country: None (occurrence: None)
  Receive Date: 20120607
  Receipt Date: 20120605
  Transmission Date: 20120825
  Serious: Yes (Death)
  Sender: FDA-Public Use
  Company Number: VE-PFIZER INC-2012129133

PATIENT
  Age: 79 Year
  Sex: Male

DRUGS (3)
  1. LIPITOR [Concomitant]
     Indication: HYPERCHOLESTEROLAEMIA
     Dosage: UNK
  2. PLAVIX [Concomitant]
     Indication: CARDIAC DISORDER
     Dosage: UNK
  3. NORVASC [Suspect]
     Indication: HYPERTENSION
     Dosage: UNK

REACTIONS (1)
  - MYOCARDIAL INFARCTION [None]
